FAERS Safety Report 4934941-3 (Version None)
Quarter: 2006Q1

REPORT INFORMATION
  Report Type: 
  Country: None (occurrence: None)
  Receive Date: 20060306
  Receipt Date: 20060306
  Transmission Date: 20060701
  Serious: Yes (Other)
  Sender: FDA-Public Use
  Company Number: None

PATIENT
  Age: 39 Year
  Sex: Female
  Weight: 106.5953 kg

DRUGS (1)
  1. ZICAM COLD REMEDY    MAXTRIXX [Suspect]
     Indication: NASOPHARYNGITIS
     Dosage: 1 SWAB   EVERY 4 HOURS   NASAL
     Route: 045
     Dates: start: 20050329, end: 20050402

REACTIONS (2)
  - AGEUSIA [None]
  - ANOSMIA [None]
